FAERS Safety Report 7137938-0 (Version None)
Quarter: 2010Q4

REPORT INFORMATION
  Report Type: 
  Country: None (occurrence: None)
  Receive Date: 20101118
  Receipt Date: 20101110
  Transmission Date: 20110411
  Serious: Yes (Hospitalization, Other)
  Sender: FDA-Public Use
  Company Number: 20109245

PATIENT
  Age: 12 Year
  Sex: Male
  Weight: 20 kg

DRUGS (7)
  1. BACLOFEN [Suspect]
     Indication: MUSCLE SPASTICITY
     Dosage: SEE B5 MCG, DAILY, INTRATHECAL
     Route: 037
  2. TOPIRAMATE [Concomitant]
  3. SOLITA-T3 [Concomitant]
  4. PERIACTIN [Concomitant]
  5. RIVOTRIL [Concomitant]
  6. DEPAKENE [Concomitant]
  7. RACOL [Concomitant]

REACTIONS (2)
  - CYCLIC VOMITING SYNDROME [None]
  - JOINT DISLOCATION [None]
